FAERS Safety Report 5402470-9 (Version None)
Quarter: 2007Q3

REPORT INFORMATION
  Report Type: 
  Country: None (occurrence: None)
  Receive Date: 20070801
  Receipt Date: 20060628
  Transmission Date: 20080115
  Serious: No
  Sender: FDA-Public Use
  Company Number: A0610654A

PATIENT
  Age: 68 Year
  Sex: Female

DRUGS (5)
  1. IMITREX [Suspect]
     Indication: MIGRAINE
     Dosage: 100MG VARIABLE DOSE
     Route: 048
     Dates: start: 19950701
  2. THYROID TAB [Concomitant]
  3. TOPAMAX [Concomitant]
  4. BONIVA [Concomitant]
  5. UNKNOWN MEDICATION [Concomitant]

REACTIONS (3)
  - DEPRESSION [None]
  - DYSPEPSIA [None]
  - NAUSEA [None]
